FAERS Safety Report 21667899 (Version 1)
Quarter: 2022Q4

REPORT INFORMATION
  Report Type: Spontaneous
  Country: DK (occurrence: DK)
  Receive Date: 20221201
  Receipt Date: 20221201
  Transmission Date: 20230113
  Serious: Yes (Life-Threatening, Hospitalization, Disabling, Other)
  Sender: FDA-Public Use
  Company Number: DK-MLMSERVICE-20221123-3929707-1

PATIENT
  Age: 27 Year
  Sex: Male

DRUGS (7)
  1. HALOPERIDOL [Suspect]
     Active Substance: HALOPERIDOL
     Indication: Abnormal behaviour
     Dosage: OVER A 24-HOUR PERIOD
     Route: 030
  2. HALOPERIDOL [Suspect]
     Active Substance: HALOPERIDOL
     Indication: Aggression
  3. RISPERDAL [Suspect]
     Active Substance: RISPERIDONE
     Indication: Abnormal behaviour
     Dosage: OVER A 24-HOUR PERIOD
     Route: 065
  4. RISPERDAL [Suspect]
     Active Substance: RISPERIDONE
     Indication: Insomnia
  5. RISPERDAL [Suspect]
     Active Substance: RISPERIDONE
     Indication: Condition aggravated
  6. OLANZAPINE [Suspect]
     Active Substance: OLANZAPINE
     Indication: Insomnia
     Route: 065
  7. OLANZAPINE [Suspect]
     Active Substance: OLANZAPINE
     Indication: Abnormal behaviour

REACTIONS (3)
  - Neuroleptic malignant syndrome [Recovering/Resolving]
  - Gait inability [Recovering/Resolving]
  - Jaundice [Unknown]
